FAERS Safety Report 8134208-9 (Version None)
Quarter: 2012Q1

REPORT INFORMATION
  Report Type: 
  Country: None (occurrence: None)
  Receive Date: 20120209
  Receipt Date: 20120127
  Transmission Date: 20120608
  Serious: Yes (Other)
  Sender: FDA-Public Use
  Company Number: USA/USA/12/0022944

PATIENT
  Age: 63 Year
  Sex: Male

DRUGS (11)
  1. ITRACONAZOLE [Concomitant]
  2. METOPROLOL (METOPROLOL SUCCINATE) [Concomitant]
  3. CIPROFLOXACIN [Suspect]
     Indication: BRONCHIECTASIS
     Dosage: 500 MG, 2 IN 1 D, ORAL
     Route: 048
     Dates: start: 20100101
  4. CYCLOSPORINE [Concomitant]
  5. BACTRIM [Concomitant]
  6. OMEPRAZOLE [Concomitant]
  7. IPRATROPIUM BROMIDE (COMBIVENT) [Concomitant]
  8. ARFORMOTEROL (ARFORMOTEROL TARTRATE) [Concomitant]
  9. EZETIMIBE [Concomitant]
  10. PREDNISONE TAB [Concomitant]
  11. AZATHIOPRINE [Concomitant]

REACTIONS (20)
  - MUSCLE INJURY [None]
  - DRUG INTERACTION [None]
  - MUSCULOSKELETAL PAIN [None]
  - NAUSEA [None]
  - VOMITING [None]
  - TOXICITY TO VARIOUS AGENTS [None]
  - BLOOD PRESSURE INCREASED [None]
  - ARTHRALGIA [None]
  - BRONCHITIS [None]
  - MUSCULAR WEAKNESS [None]
  - BACK PAIN [None]
  - FATIGUE [None]
  - MYALGIA [None]
  - CONDITION AGGRAVATED [None]
  - RENAL FAILURE ACUTE [None]
  - ASTHENIA [None]
  - PAIN IN EXTREMITY [None]
  - HYPERKALAEMIA [None]
  - KIDNEY FIBROSIS [None]
  - RHABDOMYOLYSIS [None]
